FAERS Safety Report 12786575 (Version 1)
Quarter: 2016Q3

REPORT INFORMATION
  Report Type: Spontaneous
  Country: US (occurrence: US)
  Receive Date: 20160927
  Receipt Date: 20160927
  Transmission Date: 20161109
  Serious: No
  Sender: FDA-Public Use
  Company Number: US-FRI-1000086772

PATIENT
  Age: 68 Year
  Sex: Female

DRUGS (8)
  1. LINZESS [Suspect]
     Active Substance: LINACLOTIDE
     Indication: CONSTIPATION
     Dosage: UNK UNK, QD
     Route: 048
     Dates: start: 201601, end: 20160210
  2. LINZESS [Suspect]
     Active Substance: LINACLOTIDE
     Dosage: UNK UNK, QD
     Route: 048
     Dates: start: 20160210
  3. OXYCODONE [Concomitant]
     Active Substance: OXYCODONE
     Indication: PAIN
     Dosage: 10 MG, TID
     Route: 048
     Dates: end: 20160808
  4. FENTANYL. [Concomitant]
     Active Substance: FENTANYL
     Indication: PAIN
     Dosage: 25 MG, FREQUENCY 1,FREQ_TIME 3,FREQ UNIT DAYS
     Dates: start: 20160809
  5. MORPHINE SULFATE UNK [Concomitant]
     Active Substance: MORPHINE SULFATE
     Indication: PAIN
     Dosage: 15 MG, BID
     Route: 048
     Dates: end: 20160808
  6. ZOFRAN [Concomitant]
     Active Substance: ONDANSETRON HYDROCHLORIDE
     Indication: ANTACID THERAPY
     Dosage: DAILY
     Route: 048
  7. DILAUDID [Concomitant]
     Active Substance: HYDROMORPHONE HYDROCHLORIDE
     Indication: PAIN
     Dosage: 4 MG, Q6HR
     Route: 048
     Dates: start: 20160809
  8. BENTYL [Concomitant]
     Active Substance: DICYCLOMINE HYDROCHLORIDE
     Indication: ANTACID THERAPY
     Dosage: DAILY
     Route: 048

REACTIONS (5)
  - Off label use [Not Recovered/Not Resolved]
  - Intentional product misuse [Not Recovered/Not Resolved]
  - Intentional product misuse [Not Recovered/Not Resolved]
  - Anal incontinence [Not Recovered/Not Resolved]
  - Drug ineffective [Recovered/Resolved]

NARRATIVE: CASE EVENT DATE: 201601
